FAERS Safety Report 4651744-8 (Version None)
Quarter: 2005Q2

REPORT INFORMATION
  Report Type: 
  Country: None (occurrence: None)
  Receive Date: 20050404
  Receipt Date: 20050103
  Transmission Date: 20051028
  Serious: No
  Sender: FDA-Public Use
  Company Number: USA050187265

PATIENT
  Age: 78 Year
  Sex: Female
  Weight: 84 kg

DRUGS (9)
  1. CYMBALTA [Suspect]
     Indication: DIABETIC NEUROPATHY
     Dosage: 60 MG DAY
     Dates: start: 20041220
  2. AVANDIA [Concomitant]
  3. INSULIN [Concomitant]
  4. HYZAAR [Concomitant]
  5. PLAVIX [Concomitant]
  6. ASPIRIN [Concomitant]
  7. COZAAR [Concomitant]
  8. SYNTHROID [Concomitant]
  9. CELEBREX [Concomitant]

REACTIONS (4)
  - BLOOD GLUCOSE INCREASED [None]
  - HYPERHIDROSIS [None]
  - NIGHT SWEATS [None]
  - WEIGHT DECREASED [None]
